FAERS Safety Report 11406046 (Version 1)
Quarter: 2015Q3

REPORT INFORMATION
  Report Type: Report from Study
  Country: NL (occurrence: NL)
  Receive Date: 20150821
  Receipt Date: 20150821
  Transmission Date: 20151125
  Serious: Yes (Hospitalization)
  Sender: FDA-Public Use
  Company Number: NL-AMGEN-NLDSL2015083952

PATIENT
  Age: 64 Year
  Sex: Male

DRUGS (2)
  1. ARANESP [Suspect]
     Active Substance: DARBEPOETIN ALFA
     Indication: PROPHYLAXIS
     Dosage: 500 MUG/ML, 1,0 ML Q3WK
     Route: 058
  2. ARANESP [Suspect]
     Active Substance: DARBEPOETIN ALFA
     Dosage: UNK
     Route: 065

REACTIONS (2)
  - Drug effect incomplete [Unknown]
  - Pneumonia [Unknown]
